FAERS Safety Report 23586604 (Version 2)
Quarter: 2024Q2

REPORT INFORMATION
  Report Type: Report from Study
  Country: US (occurrence: US)
  Receive Date: 20240301
  Receipt Date: 20240626
  Transmission Date: 20240715
  Serious: Yes (Hospitalization, Other)
  Sender: FDA-Public Use
  Company Number: US-BRIAN CONNER SVP QUALITY AND CHIEF COMPLIANCE OFFICER-2024XER00104

PATIENT
  Age: 64 Year
  Sex: Female

DRUGS (7)
  1. KEVEYIS [Suspect]
     Active Substance: DICHLORPHENAMIDE
     Indication: Paralysis
     Dosage: UNK
     Route: 048
     Dates: start: 20170428
  2. KEVEYIS [Suspect]
     Active Substance: DICHLORPHENAMIDE
     Dosage: 1.5 TABLETS (75 MG), 2X/DAY
     Route: 048
     Dates: start: 20231117
  3. KEVEYIS [Suspect]
     Active Substance: DICHLORPHENAMIDE
     Dosage: 1.5 TABLETS (75 MG), 2X/DAY
     Route: 048
  4. POTASSIUM [Suspect]
     Active Substance: POTASSIUM
     Dosage: UNK, 1X/DAY
     Route: 065
  5. POTASSIUM [Suspect]
     Active Substance: POTASSIUM
     Dosage: HALF DOSE, TITRATED DOWN
     Route: 065
  6. CBD + CBN SLEEP [Concomitant]
  7. YOUNG LUN [Concomitant]

REACTIONS (16)
  - Electrocardiogram QT prolonged [Recovered/Resolved]
  - Paralysis [Recovered/Resolved]
  - Hypokalaemia [Recovered/Resolved]
  - Heart rate increased [Recovered/Resolved]
  - Poor quality sleep [Recovering/Resolving]
  - Brain fog [Unknown]
  - Neuralgia [Unknown]
  - Eye pain [Unknown]
  - Weight increased [Unknown]
  - Depression [Unknown]
  - Muscular weakness [Unknown]
  - Aphasia [Unknown]
  - Limb discomfort [Unknown]
  - Dyspnoea [Recovered/Resolved]
  - Fatigue [Unknown]
  - Fall [Unknown]

NARRATIVE: CASE EVENT DATE: 20240212
